FAERS Safety Report 4474774-8 (Version None)
Quarter: 2004Q4

REPORT INFORMATION
  Report Type: 
  Country: None (occurrence: None)
  Receive Date: 20041012
  Receipt Date: 20040929
  Transmission Date: 20050328
  Serious: Yes (Death, Life-Threatening, Hospitalization)
  Sender: FDA-Public Use
  Company Number: 2004EU001786

PATIENT
  Age: 55 Year
  Sex: Male
  Weight: 100 kg

DRUGS (12)
  1. PROGRAF [Suspect]
     Indication: RENAL TRANSPLANT
     Dosage: SEE IMAGE
     Route: 048
     Dates: start: 19990815, end: 20040801
  2. PROGRAF [Suspect]
     Indication: RENAL TRANSPLANT
     Dosage: SEE IMAGE
     Route: 048
     Dates: start: 20040801, end: 20040911
  3. LEVOTHYROXINE SODIUM [Concomitant]
  4. SERETIDE (FLUTICASONE PROPIONATE, SALMETEROL XINAFOATE) [Concomitant]
  5. PREVISCAN (FLUINDIONE) [Concomitant]
  6. SOLUPRED (PREDNISOLONE SODIUM SULFOBENZOATE) EFFERVESCENT TABLET [Concomitant]
  7. CELLCEPT (MYCOPHENOLATE MOFETIL) TABLET [Concomitant]
  8. PAROXETINE HCL [Concomitant]
  9. DOBUTAMINE (DOBUTAMINE) [Concomitant]
  10. FUROSEMIDE (FUROSEMIDE) INJECTION [Concomitant]
  11. HUMALOG [Concomitant]
  12. LANTUS [Concomitant]

REACTIONS (7)
  - ATAXIA [None]
  - CARDIO-RESPIRATORY ARREST [None]
  - MOVEMENT DISORDER [None]
  - MYOCLONUS [None]
  - OVERDOSE [None]
  - SOMNOLENCE [None]
  - TREMOR [None]
